FAERS Safety Report 13465946 (Version 1)
Quarter: 2017Q2

REPORT INFORMATION
  Report Type: Spontaneous
  Country: HR (occurrence: HR)
  Receive Date: 20170421
  Receipt Date: 20170421
  Transmission Date: 20170830
  Serious: Yes (Other)
  Sender: FDA-Public Use
  Company Number: HR-LUPIN PHARMACEUTICALS INC.-2017-01888

PATIENT
  Age: 80 Year
  Sex: Female

DRUGS (20)
  1. GABAPENTIN. [Suspect]
     Active Substance: GABAPENTIN
     Dosage: 800 MG, QD
     Dates: start: 20111013, end: 20140311
  2. AMITRIPTYLINE [Suspect]
     Active Substance: AMITRIPTYLINE
     Dosage: 10 MG, QD
     Route: 048
     Dates: start: 20110905, end: 20120405
  3. PARACETAMOL [Suspect]
     Active Substance: ACETAMINOPHEN
     Indication: POST HERPETIC NEURALGIA
     Dosage: 900 MG, QD
     Route: 061
     Dates: start: 20111013, end: 20140311
  4. CARBAMAZEPINE. [Suspect]
     Active Substance: CARBAMAZEPINE
     Indication: POST HERPETIC NEURALGIA
     Dosage: 800 MG, QD
     Route: 065
     Dates: start: 20120405, end: 20140311
  5. TOPICAL LIDOCAINE PLASTER [Suspect]
     Active Substance: LIDOCAINE
     Indication: POST HERPETIC NEURALGIA
     Dosage: 5 %, UNK
     Route: 061
     Dates: start: 201011
  6. TRAMADOL HYDROCHLORIDE. [Suspect]
     Active Substance: TRAMADOL HYDROCHLORIDE
     Dosage: 300 MG, QD
     Dates: start: 20110905
  7. NORTRIPTYLINE [Suspect]
     Active Substance: NORTRIPTYLINE
     Indication: POST HERPETIC NEURALGIA
     Dosage: UNK
     Dates: start: 2013, end: 20140311
  8. PREGABALIN. [Concomitant]
     Active Substance: PREGABALIN
     Indication: POST HERPETIC NEURALGIA
     Dosage: UNK
     Dates: start: 2013, end: 20140311
  9. TRAMADOL HYDROCHLORIDE. [Suspect]
     Active Substance: TRAMADOL HYDROCHLORIDE
     Dosage: 100 MG, QD
     Dates: start: 20110624, end: 20131201
  10. TRAMADOL HYDROCHLORIDE. [Suspect]
     Active Substance: TRAMADOL HYDROCHLORIDE
     Dosage: UNK UNK, SPORADICALLY
     Dates: start: 2014, end: 20140311
  11. GABAPENTIN. [Suspect]
     Active Substance: GABAPENTIN
     Indication: POST HERPETIC NEURALGIA
     Dosage: 75 MG, QD, FIRST WEEK
     Dates: start: 20101102
  12. TRAMADOL HYDROCHLORIDE. [Suspect]
     Active Substance: TRAMADOL HYDROCHLORIDE
     Indication: POST HERPETIC NEURALGIA
     Dosage: 100 MG, QD
     Dates: start: 201011
  13. TOPICAL LIDOCAINE PLASTER [Suspect]
     Active Substance: LIDOCAINE
     Dosage: UNK, EVERY 12 HOURS THREE DAYS A WEEK
     Dates: start: 2013, end: 20140311
  14. LEVOBUPIVACAINE HCL [Concomitant]
     Indication: PRODUCT USED FOR UNKNOWN INDICATION
     Dosage: UNK
     Dates: start: 20120820
  15. GABAPENTIN. [Suspect]
     Active Substance: GABAPENTIN
     Dosage: 150 MG, QD, SECOND WEEK
     Dates: start: 201011
  16. AMITRIPTYLINE [Suspect]
     Active Substance: AMITRIPTYLINE
     Indication: POST HERPETIC NEURALGIA
     Dosage: 25 MG, QD
     Route: 048
     Dates: start: 201011
  17. KETOPROFEN. [Suspect]
     Active Substance: KETOPROFEN
     Indication: POST HERPETIC NEURALGIA
     Dosage: 400 MG, QD
     Route: 048
     Dates: start: 20131110, end: 20140311
  18. GABAPENTIN. [Suspect]
     Active Substance: GABAPENTIN
     Dosage: 300 MG, QD, THIRD WEEK
     Dates: start: 201011
  19. TRAMADOL HYDROCHLORIDE. [Suspect]
     Active Substance: TRAMADOL HYDROCHLORIDE
     Indication: POST HERPETIC NEURALGIA
     Dosage: 200 MG/DAY, THREE TIMES PER WEEK
  20. DEXAMETHASONE. [Concomitant]
     Active Substance: DEXAMETHASONE
     Indication: PRODUCT USED FOR UNKNOWN INDICATION
     Dosage: UNK
     Dates: start: 20120820

REACTIONS (10)
  - Constipation [Unknown]
  - Ataxia [Unknown]
  - Dry mouth [Unknown]
  - Pruritus [Unknown]
  - Dizziness [Unknown]
  - Feeling abnormal [Unknown]
  - Insomnia [Unknown]
  - Diplopia [Unknown]
  - Alopecia [Unknown]
  - Restlessness [Unknown]

NARRATIVE: CASE EVENT DATE: 2010
